FAERS Safety Report 23972588 (Version 1)
Quarter: 2024Q2

REPORT INFORMATION
  Report Type: Spontaneous
  Country: US (occurrence: CA)
  Receive Date: 20240613
  Receipt Date: 20240613
  Transmission Date: 20240716
  Serious: No
  Sender: FDA-Public Use
  Company Number: US-SA-SAC20240612000320

PATIENT
  Age: 49 Year
  Sex: Male

DRUGS (2)
  1. CABAZITAXEL [Suspect]
     Active Substance: CABAZITAXEL
     Dosage: UNK
     Route: 065
  2. DOCETAXEL [Suspect]
     Active Substance: DOCETAXEL\DOCETAXEL ANHYDROUS
     Dosage: UNK

REACTIONS (7)
  - Back pain [Unknown]
  - Hyperhidrosis [Unknown]
  - Paraesthesia [Unknown]
  - Erythema [Unknown]
  - Dyspnoea [Unknown]
  - Rash [Unknown]
  - Urticaria [Unknown]
